FAERS Safety Report 7762897-7 (Version None)
Quarter: 2011Q3

REPORT INFORMATION
  Report Type: 
  Country: None (occurrence: None)
  Receive Date: 20110920
  Receipt Date: 20110916
  Transmission Date: 20111222
  Serious: No
  Sender: FDA-Public Use
  Company Number: US-TEVA-258440USA

PATIENT
  Sex: Female

DRUGS (7)
  1. FISH OIL [Concomitant]
     Dates: start: 20100401
  2. CELEXA [Concomitant]
     Indication: ANXIETY
     Dates: start: 20090601
  3. CELEXA [Concomitant]
     Dates: start: 20101117
  4. FISH OIL [Concomitant]
     Dates: start: 20101117
  5. COPAXONE [Suspect]
     Indication: MULTIPLE SCLEROSIS
     Route: 058
     Dates: start: 20100216, end: 20101117
  6. FISH OIL [Concomitant]
     Dates: start: 20100401
  7. CELEXA [Concomitant]
     Dates: start: 20100401

REACTIONS (1)
  - LIVE BIRTH [None]
